FAERS Safety Report 13601647 (Version 1)
Quarter: 2017Q2

REPORT INFORMATION
  Report Type: Spontaneous
  Country: US (occurrence: US)
  Receive Date: 20170601
  Receipt Date: 20170601
  Transmission Date: 20170830
  Serious: No
  Sender: FDA-Public Use
  Company Number: US-BAUSCH-BL-2016-015000

PATIENT
  Sex: Female

DRUGS (1)
  1. ELIDEL [Suspect]
     Active Substance: PIMECROLIMUS
     Indication: AUTOIMMUNE DISORDER
     Route: 061

REACTIONS (3)
  - Muscle spasms [Unknown]
  - Malaise [Unknown]
  - Off label use [Unknown]
